FAERS Safety Report 5190802-9 (Version None)
Quarter: 2006Q4

REPORT INFORMATION
  Report Type: 
  Country: None (occurrence: None)
  Receive Date: 20061215
  Receipt Date: 20061129
  Transmission Date: 20070319
  Serious: Yes (Hospitalization)
  Sender: FDA-Public Use
  Company Number: S06-DEN-05151-01

PATIENT
  Age: 41 Year
  Sex: Female

DRUGS (1)
  1. AKARIN (CITALOPRAM) [Suspect]
     Indication: DEPRESSION
     Dosage: 40 MG QD; PO
     Route: 048
     Dates: start: 20060424

REACTIONS (4)
  - HYPERACUSIS [None]
  - MYOCLONUS [None]
  - PHOTOPHOBIA [None]
  - SENSORY DISTURBANCE [None]
